FAERS Safety Report 14839555 (Version 1)
Quarter: 2018Q2

REPORT INFORMATION
  Report Type: Spontaneous
  Country: GB (occurrence: GB)
  Receive Date: 20180502
  Receipt Date: 20180502
  Transmission Date: 20180711
  Serious: Yes (Life-Threatening, Disabling, Other)
  Sender: FDA-Public Use
  Company Number: PHHY2018GB076849

PATIENT
  Age: 40 Year
  Sex: Male
  Weight: 105 kg

DRUGS (3)
  1. GABAPENTIN. [Suspect]
     Active Substance: GABAPENTIN
     Indication: MUSCLE SPASMS
     Dosage: 1800 MG, QD (200MG 3 TIMES DAILY, INCREASING 100 MG EVERY 3 DAYS, TO 600 MG 3 TIMES DAILY)
     Route: 048
     Dates: start: 2017
  2. BACLOFEN. [Concomitant]
     Active Substance: BACLOFEN
     Indication: PRODUCT USED FOR UNKNOWN INDICATION
     Dosage: 30 MG, QD
     Route: 065
  3. GABAPENTIN. [Suspect]
     Active Substance: GABAPENTIN
     Dosage: 600 MG, QD (200MG 3 TIMES DAILY, INCREASING 100 MG EVERY 3 DAYS, TO 600 MG 3 TIMES DAILY)
     Route: 048
     Dates: start: 20171006

REACTIONS (13)
  - Mood swings [Unknown]
  - Dissociation [Recovering/Resolving]
  - Clumsiness [Recovering/Resolving]
  - Abdominal pain upper [Recovering/Resolving]
  - Dysphagia [Recovering/Resolving]
  - Amnesia [Recovering/Resolving]
  - Depression [Recovering/Resolving]
  - Abnormal weight gain [Recovering/Resolving]
  - Back pain [Recovering/Resolving]
  - Neck pain [Recovering/Resolving]
  - Suicidal ideation [Recovering/Resolving]
  - Abdominal distension [Recovering/Resolving]
  - Euphoric mood [Unknown]

NARRATIVE: CASE EVENT DATE: 20171026
